FAERS Safety Report 6895918-4 (Version None)
Quarter: 2010Q3

REPORT INFORMATION
  Report Type: 
  Country: None (occurrence: None)
  Receive Date: 20100802
  Receipt Date: 20100723
  Transmission Date: 20110219
  Serious: Yes (Hospitalization)
  Sender: FDA-Public Use
  Company Number: GXKR2010TW08242

PATIENT
  Age: 44 Year
  Sex: Male

DRUGS (4)
  1. DIPHENHYDRAMINE (NGX) [Suspect]
     Indication: INSOMNIA
     Dosage: 180 MG, (IN FIVE DIVIDED DOSES, VIA THE FEMORAL VEIN)
     Route: 042
  2. DIPHENHYDRAMINE (NGX) [Suspect]
     Indication: HEADACHE
  3. NEFOPAM [Suspect]
     Indication: INSOMNIA
     Dosage: 120 MG/DAY (IN FIVE DIVIDED DOSES, VIA THE FEMORAL VEIN)
     Route: 042
  4. NEFOPAM [Suspect]
     Indication: HEADACHE

REACTIONS (9)
  - CONSCIOUSNESS FLUCTUATING [None]
  - DELIRIUM [None]
  - DEPENDENCE [None]
  - DISORIENTATION [None]
  - HALLUCINATION [None]
  - HYPERHIDROSIS [None]
  - INSOMNIA [None]
  - PSYCHOMOTOR HYPERACTIVITY [None]
  - WITHDRAWAL SYNDROME [None]
